FAERS Safety Report 7915679-7 (Version None)
Quarter: 2011Q4

REPORT INFORMATION
  Report Type: 
  Country: None (occurrence: None)
  Receive Date: 20111115
  Receipt Date: 20111109
  Transmission Date: 20120403
  Serious: Yes (Other)
  Sender: FDA-Public Use
  Company Number: US-GLAXOSMITHKLINE-A0946797A

PATIENT
  Age: 57 Year
  Sex: Male

DRUGS (4)
  1. ANTIHISTAMINE [Concomitant]
  2. ALBUTEROL [Concomitant]
  3. ADVAIR DISKUS 100/50 [Suspect]
     Indication: ASTHMA
     Dosage: 1PUFF PER DAY
     Route: 055
     Dates: start: 20090101, end: 20111001
  4. ALVESCO [Concomitant]

REACTIONS (5)
  - DYSPNOEA [None]
  - HYPOPNOEA [None]
  - DRUG ADMINISTRATION ERROR [None]
  - ASTHMA [None]
  - PRODUCT QUALITY ISSUE [None]
